FAERS Safety Report 4906276-6 (Version None)
Quarter: 2006Q1

REPORT INFORMATION
  Report Type: 
  Country: None (occurrence: None)
  Receive Date: 20060209
  Receipt Date: 20060202
  Transmission Date: 20060701
  Serious: Yes (Death)
  Sender: FDA-Public Use
  Company Number: JP-AVENTIS-200610353JP

PATIENT
  Age: 61 Year
  Sex: Male

DRUGS (3)
  1. LASIX [Suspect]
     Dates: start: 20040801, end: 20040901
  2. UNKNOWN DRUG [Suspect]
  3. UNKNOWN DRUG [Concomitant]

REACTIONS (2)
  - MULTI-ORGAN FAILURE [None]
  - TOXIC EPIDERMAL NECROLYSIS [None]
